FAERS Safety Report 7775471-3 (Version None)
Quarter: 2011Q3

REPORT INFORMATION
  Report Type: 
  Country: None (occurrence: None)
  Receive Date: 20110923
  Receipt Date: 20110920
  Transmission Date: 20111222
  Serious: Yes (Hospitalization, Other)
  Sender: FDA-Public Use
  Company Number: CA-ABBOTT-11P-028-0846449-00

PATIENT
  Sex: Male
  Weight: 86.714 kg

DRUGS (12)
  1. PURINETHOL [Concomitant]
     Indication: CROHN'S DISEASE
     Route: 048
     Dates: start: 19990101
  2. HUMIRA [Suspect]
     Route: 058
     Dates: start: 20100101, end: 20101201
  3. AVAPRO [Concomitant]
     Indication: HYPERTENSION
     Route: 048
     Dates: start: 20020101
  4. CRESTOR [Concomitant]
     Indication: BLOOD CHOLESTEROL INCREASED
     Route: 048
     Dates: start: 20050101
  5. TIAZAC [Concomitant]
     Indication: HYPERTENSION
     Route: 048
     Dates: start: 20020101
  6. XANAX [Concomitant]
     Indication: ANXIETY
     Route: 048
     Dates: start: 19860101
  7. WELLBUTRIN XL [Concomitant]
     Indication: ANXIETY
     Route: 048
     Dates: start: 20050101
  8. HUMIRA [Suspect]
     Indication: CROHN'S DISEASE
     Route: 058
     Dates: start: 20091215
  9. RATIO-SOTALOL [Concomitant]
     Indication: MITRAL VALVE INCOMPETENCE
     Route: 048
     Dates: start: 19980101
  10. PAXIL [Concomitant]
     Indication: ANXIETY
     Route: 048
     Dates: start: 19980101
  11. NEXIUM [Concomitant]
     Indication: GASTROOESOPHAGEAL REFLUX DISEASE
     Route: 048
     Dates: start: 19860101
  12. RATIO DOCUSATE SODIUM [Concomitant]
     Indication: LAXATIVE SUPPORTIVE CARE
     Route: 048
     Dates: start: 20050101, end: 20110530

REACTIONS (8)
  - CROHN'S DISEASE [None]
  - INTESTINAL OBSTRUCTION [None]
  - COLONIC STENOSIS [None]
  - VITAMIN B12 DECREASED [None]
  - INTESTINAL STENOSIS [None]
  - HAEMORRHOIDS [None]
  - CONSTIPATION [None]
  - FREQUENT BOWEL MOVEMENTS [None]
